FAERS Safety Report 12697624 (Version 1)
Quarter: 2016Q3

REPORT INFORMATION
  Report Type: Spontaneous
  Country: US (occurrence: US)
  Receive Date: 20160830
  Receipt Date: 20160830
  Transmission Date: 20161109
  Serious: Yes (Other)
  Sender: FDA-Public Use
  Company Number: US-SA-2016SA155124

PATIENT
  Age: 40 Year
  Sex: Male

DRUGS (1)
  1. ARTHRITIS HOT [Suspect]
     Active Substance: MENTHOL\METHYL SALICYLATE
     Dosage: STRENGTH- 3 OZ
     Route: 065
     Dates: start: 20160409

REACTIONS (2)
  - Burning sensation [Unknown]
  - Chemical burn of skin [Not Recovered/Not Resolved]

NARRATIVE: CASE EVENT DATE: 20160409
